FAERS Safety Report 18322608 (Version 1)
Quarter: 2020Q3

REPORT INFORMATION
  Report Type: Spontaneous
  Country: NL (occurrence: NL)
  Receive Date: 20200929
  Receipt Date: 20200929
  Transmission Date: 20201103
  Serious: Yes (Other)
  Sender: FDA-Public Use
  Company Number: NL-SUN PHARMACEUTICAL INDUSTRIES LTD-2020RR-262488

PATIENT
  Sex: Female
  Weight: 84 kg

DRUGS (5)
  1. ALENDRONIC ACID [Suspect]
     Active Substance: ALENDRONIC ACID
     Indication: OSTEOPOROSIS
     Dosage: 1 X PER WEEK
     Route: 065
     Dates: start: 202001, end: 20200612
  2. TRAMADOL CAPSULE MGA  50MG / BRAND NAME NOT SPECIFIEDTRAMADOL CAPSU... [Concomitant]
     Indication: PRODUCT USED FOR UNKNOWN INDICATION
     Dosage: CAPSULE MET GEREGULEERDE AFGIFTE, 50 MG (MILLIGRAM) ()
     Route: 065
  3. PANTOPRAZOL TABLET MSR 20MG / MAAGZUURTABLET PANTOPRAZOL HTP TABLET... [Concomitant]
     Indication: PRODUCT USED FOR UNKNOWN INDICATION
     Dosage: MAAGSAPRESISTENTE TABLET, 20 MG (MILLIGRAM) ()
     Route: 065
  4. IBUPROFEN DRAGEE 400MG / BRAND NAME NOT SPECIFIEDIBUPROFEN DRAGEE 4... [Concomitant]
     Indication: PRODUCT USED FOR UNKNOWN INDICATION
     Dosage: TABLET, 400 MG (MILLIGRAM) ()
     Route: 065
  5. PARACETAMOL TABLET 1000MG / BRAND NAME NOT SPECIFIEDPARACETAMOL TAB... [Concomitant]
     Indication: PRODUCT USED FOR UNKNOWN INDICATION
     Dosage: TABLET, 1000 MG (MILLIGRAM) ()
     Route: 065

REACTIONS (7)
  - Halo vision [Recovering/Resolving]
  - Photopsia [Recovering/Resolving]
  - Photophobia [Recovering/Resolving]
  - Visual impairment [Recovering/Resolving]
  - Ocular icterus [Recovered/Resolved]
  - Vision blurred [Recovering/Resolving]
  - Eye haemorrhage [Recovered/Resolved]
